FAERS Safety Report 8095557-6 (Version None)
Quarter: 2012Q1

REPORT INFORMATION
  Report Type: 
  Country: None (occurrence: None)
  Receive Date: 20120131
  Receipt Date: 20120125
  Transmission Date: 20120608
  Serious: Yes (Hospitalization)
  Sender: FDA-Public Use
  Company Number: IT-PFIZER INC-2010079979

PATIENT
  Age: 77 Year
  Sex: Male

DRUGS (5)
  1. RAMIPRIL [Suspect]
     Indication: HYPERTENSION
     Dosage: 2.5 MG, DAILY
     Route: 048
     Dates: start: 20100609, end: 20100614
  2. DILTIAZEM HCL [Suspect]
     Indication: HYPERTENSION
     Dosage: 120 MG, 2X/DAY
     Route: 048
     Dates: start: 20100414, end: 20100614
  3. ALLOPURINOL [Concomitant]
     Dosage: UNK
  4. CARDURA [Suspect]
     Indication: HYPERTENSION
     Dosage: 4 MG, 1X/DAY
     Route: 048
     Dates: start: 20100414, end: 20100614
  5. ASPIRIN [Concomitant]
     Dosage: UNK

REACTIONS (1)
  - LOSS OF CONSCIOUSNESS [None]
